FAERS Safety Report 6940270-9 (Version None)
Quarter: 2010Q3

REPORT INFORMATION
  Report Type: 
  Country: None (occurrence: None)
  Receive Date: 20100825
  Receipt Date: 20100816
  Transmission Date: 20110219
  Serious: Yes (Disabling, Other)
  Sender: FDA-Public Use
  Company Number: FR-MILLENNIUM PHARMACEUTICALS, INC.-2010-04459

PATIENT

DRUGS (4)
  1. VELCADE [Suspect]
     Indication: MULTIPLE MYELOMA
     Dosage: 2.4 MG, UNK
     Route: 042
     Dates: start: 20060428, end: 20060526
  2. VELCADE [Suspect]
     Dosage: 2.2 MG, UNK
     Route: 042
     Dates: start: 20060609, end: 20060710
  3. DEXAMETHASONE [Concomitant]
     Dosage: 40 MG, UNK
     Route: 048
  4. ONDANSETRON [Concomitant]
     Dosage: 8 MG, UNK
     Route: 042

REACTIONS (2)
  - NEUROPATHY PERIPHERAL [None]
  - ROTATOR CUFF SYNDROME [None]
